FAERS Safety Report 9789160 (Version 3)
Quarter: 2014Q1

REPORT INFORMATION
  Report Type: Spontaneous
  Country: US (occurrence: US)
  Receive Date: 20131230
  Receipt Date: 20140227
  Transmission Date: 20141002
  Serious: Yes (Hospitalization)
  Sender: FDA-Public Use
  Company Number: US-B.I. PHARMACEUTICALS,INC./RIDGEFIELD-2013-BI-43836BP

PATIENT
  Sex: Male
  Weight: 79 kg

DRUGS (9)
  1. SPIRIVA [Suspect]
     Indication: PRODUCT USED FOR UNKNOWN INDICATION
     Dosage: 18 MCG
     Route: 055
     Dates: start: 2011
  2. LANTUS INSULIN [Concomitant]
     Indication: DIABETES MELLITUS
     Dosage: 40 U
     Route: 058
  3. HUMALOG [Concomitant]
     Indication: DIABETES MELLITUS
     Dosage: FORMULATION: SUBCUTANEOUS
     Route: 058
  4. PREDNISONE [Concomitant]
     Dosage: 10 MG
     Route: 048
  5. MAG OXIDE [Concomitant]
     Dosage: 400 MG
     Route: 048
  6. PROTONIX [Concomitant]
     Indication: GASTROOESOPHAGEAL REFLUX DISEASE
     Dosage: 40 MG
     Route: 048
  7. IMDUR [Concomitant]
     Indication: CARDIAC FAILURE CONGESTIVE
     Dosage: 30 MG
     Route: 048
  8. METFORMIN [Concomitant]
     Dosage: 500 MG
     Route: 048
  9. PLAVIX [Concomitant]
     Indication: CARDIOVASCULAR EVENT PROPHYLAXIS
     Dosage: 75 MG
     Route: 048

REACTIONS (5)
  - Pneumonia [Not Recovered/Not Resolved]
  - Hypotension [Not Recovered/Not Resolved]
  - Product quality issue [Recovered/Resolved]
  - Product quality issue [Recovered/Resolved]
  - Product quality issue [Recovered/Resolved]
